FAERS Safety Report 8575781 (Version 2)
Quarter: 2014Q1

REPORT INFORMATION
  Report Type: Spontaneous
  Country: US (occurrence: None)
  Receive Date: 20120323
  Receipt Date: 20130305
  Transmission Date: 20141002
  Serious: Yes (Hospitalization)
  Sender: FDA-Public Use
  Company Number: 163-21880-11081307

PATIENT
  Age: 84 Year
  Sex: Female
  Weight: 54.43 kg

DRUGS (5)
  1. REVLIMID [Suspect]
     Indication: PLASMA CELL MYELOMA
     Dosage: 15 MG, DAILY X 21 DAYS, PO
     Route: 048
     Dates: start: 20110722, end: 20110803
  2. PREVACID (LANSOPRAZOLE) [Concomitant]
  3. ASPIRIN (ACETYLSALICYLIC ACID) [Concomitant]
  4. COUMADIN (WARFARIN SODIUM) [Concomitant]
  5. BLOOD (BLOOD AND RELATED PRODUCTS) (INJECTION) [Concomitant]

REACTIONS (3)
  - Fatigue [None]
  - Asthenia [None]
  - Pain in extremity [None]
